FAERS Safety Report 19119582 (Version 2)
Quarter: 2021Q3

REPORT INFORMATION
  Report Type: Report from Study
  Country: None (occurrence: US)
  Receive Date: 20210412
  Receipt Date: 20210730
  Transmission Date: 20211014
  Serious: Yes (Other)
  Sender: FDA-Public Use
  Company Number: US-ABBVIE-21K-163-3852180-00

PATIENT
  Age: 51 Year
  Sex: Female

DRUGS (2)
  1. RINVOQ [Suspect]
     Active Substance: UPADACITINIB
     Indication: RHEUMATOID ARTHRITIS
     Route: 048
     Dates: end: 2021
  2. RINVOQ [Suspect]
     Active Substance: UPADACITINIB
     Route: 048
     Dates: start: 2021

REACTIONS (8)
  - Musculoskeletal disorder [Recovering/Resolving]
  - Knee operation [Recovering/Resolving]
  - Post procedural complication [Recovering/Resolving]
  - Procedural pain [Recovering/Resolving]
  - Neuropathy peripheral [Recovering/Resolving]
  - Medical device site discomfort [Recovering/Resolving]
  - Knee arthroplasty [Recovered/Resolved]
  - Vitamin D decreased [Unknown]

NARRATIVE: CASE EVENT DATE: 202104
